FAERS Safety Report 5214275-2 (Version None)
Quarter: 2007Q1

REPORT INFORMATION
  Report Type: 
  Country: None (occurrence: None)
  Receive Date: 20070122
  Receipt Date: 20070116
  Transmission Date: 20070707
  Serious: Yes (Other)
  Sender: FDA-Public Use
  Company Number: US-JNJFOC-20070104291

PATIENT
  Sex: Female

DRUGS (3)
  1. REMICADE [Suspect]
  2. REMICADE [Suspect]
  3. REMICADE [Suspect]
     Indication: PSORIATIC ARTHROPATHY

REACTIONS (3)
  - FALL [None]
  - NEUROPATHY PERIPHERAL [None]
  - RIB FRACTURE [None]
